FAERS Safety Report 8114321-2 (Version None)
Quarter: 2012Q1

REPORT INFORMATION
  Report Type: 
  Country: None (occurrence: None)
  Receive Date: 20120206
  Receipt Date: 20120127
  Transmission Date: 20120608
  Serious: No
  Sender: FDA-Public Use
  Company Number: US-BIOGENIDEC-2011BI029021

PATIENT
  Sex: Female

DRUGS (1)
  1. TYSABRI [Suspect]
     Indication: MULTIPLE SCLEROSIS
     Route: 042
     Dates: start: 20101210

REACTIONS (12)
  - TEMPERATURE INTOLERANCE [None]
  - ASTHENIA [None]
  - FATIGUE [None]
  - MUSCLE SPASMS [None]
  - OSTEOPENIA [None]
  - BACK PAIN [None]
  - FALL [None]
  - HEMIPARESIS [None]
  - DYSSTASIA [None]
  - SPINAL DEFORMITY [None]
  - OVERWEIGHT [None]
  - MUSCULAR WEAKNESS [None]
